FAERS Safety Report 10154841 (Version 1)
Quarter: 2014Q2

REPORT INFORMATION
  Report Type: Spontaneous
  Country: US (occurrence: None)
  Receive Date: 20140505
  Receipt Date: 20140505
  Transmission Date: 20141212
  Serious: No
  Sender: FDA-Public Use
  Company Number: None

PATIENT
  Age: 65 Year
  Sex: Female
  Weight: 61.69 kg

DRUGS (4)
  1. AGGRENOX [Suspect]
     Indication: TRANSIENT ISCHAEMIC ATTACK
     Dosage: 1 PILL TWICE A DAY BY MOUTH
     Route: 048
     Dates: start: 20140501, end: 20140502
  2. AGGRENOX [Suspect]
     Indication: CEREBROVASCULAR ACCIDENT
     Dosage: 1 PILL TWICE A DAY BY MOUTH
     Route: 048
     Dates: start: 20140501, end: 20140502
  3. AGGRENOX [Suspect]
     Indication: NUCLEAR MAGNETIC RESONANCE IMAGING
     Dosage: 1 PILL TWICE A DAY BY MOUTH
     Route: 048
     Dates: start: 20140501, end: 20140502
  4. AGGRENOX [Suspect]
     Indication: ARTERIAL OCCLUSIVE DISEASE
     Dosage: 1 PILL TWICE A DAY BY MOUTH
     Route: 048
     Dates: start: 20140501, end: 20140502

REACTIONS (9)
  - Flushing [None]
  - Headache [None]
  - Nausea [None]
  - Vomiting [None]
  - Retching [None]
  - Diarrhoea [None]
  - Muscular weakness [None]
  - Muscle spasms [None]
  - Restlessness [None]
